FAERS Safety Report 7206890-1 (Version None)
Quarter: 2010Q4

REPORT INFORMATION
  Report Type: 
  Country: None (occurrence: None)
  Receive Date: 20101217
  Receipt Date: 20101206
  Transmission Date: 20110411
  Serious: Yes (Other)
  Sender: FDA-Public Use
  Company Number: FKO201000549

PATIENT
  Age: 65 Year
  Sex: Male

DRUGS (6)
  1. METHOTREXATE [Suspect]
     Indication: COLITIS ULCERATIVE
     Dates: start: 20010601, end: 20071101
  2. METHOTREXATE [Suspect]
     Indication: SPONDYLOARTHROPATHY
     Dates: start: 20010601, end: 20071101
  3. PREDNISONE [Suspect]
     Indication: COLITIS ULCERATIVE
     Dosage: (5 MG, PER DAY)
  4. PREDNISONE [Suspect]
     Indication: SPONDYLOARTHROPATHY
     Dosage: (5 MG, PER DAY)
  5. STEROID (CORTICOSTEROIDS) (CORTICOSTEROIDS) [Suspect]
     Indication: COLITIS ULCERATIVE
     Dosage: INTRAVENOUS
     Route: 042
  6. STEROID (CORTICOSTEROIDS) (CORTICOSTEROIDS) [Suspect]
     Indication: SPONDYLOARTHROPATHY
     Dosage: INTRAVENOUS
     Route: 042

REACTIONS (4)
  - COLITIS ULCERATIVE [None]
  - CONDITION AGGRAVATED [None]
  - DRUG TOXICITY [None]
  - KAPOSI'S SARCOMA [None]
